FAERS Safety Report 7915577-9 (Version None)
Quarter: 2011Q4

REPORT INFORMATION
  Report Type: 
  Country: None (occurrence: None)
  Receive Date: 20111115
  Receipt Date: 20110914
  Transmission Date: 20120403
  Serious: Yes (Other)
  Sender: FDA-Public Use
  Company Number: US-BRISTOL-MYERS SQUIBB COMPANY-15941602

PATIENT
  Age: 51 Year
  Sex: Female

DRUGS (5)
  1. YERVOY [Suspect]
     Dosage: LAST INFUSION: 22JUN2011 NO OF TREATMENTS:4
     Dates: start: 20110420, end: 20110622
  2. LORAZEPAM [Concomitant]
  3. BUPROPION HCL [Concomitant]
  4. VICODIN [Concomitant]
  5. LUNESTA [Concomitant]
     Indication: SLEEP APNOEA SYNDROME

REACTIONS (5)
  - IRRITABILITY [None]
  - RASH [None]
  - HEADACHE [None]
  - ALOPECIA [None]
  - NEOPLASM MALIGNANT [None]
